FAERS Safety Report 9171580 (Version 3)
Quarter: 2013Q3

REPORT INFORMATION
  Report Type: Spontaneous
  Country: US (occurrence: US)
  Receive Date: 20130319
  Receipt Date: 20130718
  Transmission Date: 20140515
  Serious: Yes (Hospitalization)
  Sender: FDA-Public Use
  Company Number: US-GLAXOSMITHKLINE-A1016357A

PATIENT
  Sex: Male

DRUGS (1)
  1. AVANDIA [Suspect]
     Indication: DIABETES MELLITUS
     Route: 048
     Dates: start: 200109, end: 200604

REACTIONS (6)
  - Myocardial infarction [Not Recovered/Not Resolved]
  - Thyroid disorder [Unknown]
  - Poor peripheral circulation [Unknown]
  - Dizziness [Unknown]
  - Insomnia [Unknown]
  - Fall [Unknown]
